FAERS Safety Report 12519379 (Version 1)
Quarter: 2016Q2

REPORT INFORMATION
  Report Type: Spontaneous
  Country: US (occurrence: US)
  Receive Date: 20160630
  Receipt Date: 20160630
  Transmission Date: 20160815
  Serious: Yes (Death, Other)
  Sender: FDA-Public Use
  Company Number: US-ELI_LILLY_AND_COMPANY-US201606009923

PATIENT
  Age: 50 Year
  Sex: Male

DRUGS (1)
  1. ZYPREXA [Suspect]
     Active Substance: OLANZAPINE
     Indication: PARANOIA
     Dosage: 10 MG, UNKNOWN
     Route: 065

REACTIONS (5)
  - Renal failure [Unknown]
  - Death [Fatal]
  - Parkinson^s disease [Unknown]
  - Libido disorder [Unknown]
  - Off label use [Unknown]

NARRATIVE: CASE EVENT DATE: 2012
